FAERS Safety Report 10946768 (Version 1)
Quarter: 2015Q1

REPORT INFORMATION
  Report Type: Spontaneous
  Country: US (occurrence: US)
  Receive Date: 20150323
  Receipt Date: 20150323
  Transmission Date: 20150721
  Serious: Yes (Hospitalization)
  Sender: FDA-Public Use
  Company Number: US-JNJFOC-20150309956

PATIENT
  Age: 40 Year
  Sex: Male

DRUGS (6)
  1. OMEPRAZOLE. [Concomitant]
     Active Substance: OMEPRAZOLE
     Route: 065
  2. XANAX [Concomitant]
     Active Substance: ALPRAZOLAM
     Route: 065
  3. LEXAPRO [Concomitant]
     Active Substance: ESCITALOPRAM OXALATE
     Route: 065
  4. STELARA [Suspect]
     Active Substance: USTEKINUMAB
     Indication: PSORIASIS
     Route: 058
     Dates: start: 201412
  5. WARFARIN [Concomitant]
     Active Substance: WARFARIN
     Dosage: 10-15 MG
     Route: 065
  6. CLOBETASOL [Concomitant]
     Active Substance: CLOBETASOL
     Indication: PSORIASIS
     Route: 065

REACTIONS (3)
  - Drug dose omission [Unknown]
  - Pulmonary embolism [Unknown]
  - Syringe issue [Unknown]

NARRATIVE: CASE EVENT DATE: 20141221
